FAERS Safety Report 11765904 (Version 1)
Quarter: 2015Q4

REPORT INFORMATION
  Report Type: Report from Study
  Country: US (occurrence: US)
  Receive Date: 20151122
  Receipt Date: 20151122
  Transmission Date: 20160304
  Serious: No
  Sender: FDA-Public Use
  Company Number: PHEH2015US023557

PATIENT
  Age: 29 Year
  Sex: Female

DRUGS (3)
  1. EXJADE [Suspect]
     Active Substance: DEFERASIROX
     Indication: MYELODYSPLASTIC SYNDROME
  2. EXJADE [Suspect]
     Active Substance: DEFERASIROX
     Indication: SICKLE CELL ANAEMIA
     Dosage: 500 MG, BID
     Route: 048
  3. DESFERAL [Suspect]
     Active Substance: DEFEROXAMINE MESYLATE
     Indication: SICKLE CELL ANAEMIA
     Route: 042

REACTIONS (7)
  - Diarrhoea [Recovered/Resolved]
  - Nephrolithiasis [Not Recovered/Not Resolved]
  - Rash [Recovered/Resolved]
  - Pain [Recovered/Resolved]
  - Drug ineffective [Recovered/Resolved]
  - Fatigue [Not Recovered/Not Resolved]
  - Nausea [Recovered/Resolved]
